FAERS Safety Report 4853285-1 (Version None)
Quarter: 2005Q4

REPORT INFORMATION
  Report Type: 
  Country: None (occurrence: None)
  Receive Date: 20051214
  Receipt Date: 20051206
  Transmission Date: 20060501
  Serious: Yes (Hospitalization)
  Sender: FDA-Public Use
  Company Number: US-GLAXOSMITHKLINE-A0584891A

PATIENT
  Age: 48 Year
  Sex: Female
  Weight: 100 kg

DRUGS (2)
  1. TOPOTECAN [Suspect]
     Indication: CERVIX CARCINOMA RECURRENT
     Dosage: 1.5MG PER DAY
     Route: 042
     Dates: start: 19981028, end: 19981030
  2. CISPLATIN [Suspect]
     Indication: CERVIX CARCINOMA RECURRENT
     Dosage: 100MG SINGLE DOSE
     Route: 042
     Dates: start: 19981028, end: 19981028

REACTIONS (5)
  - CLOSTRIDIAL INFECTION [None]
  - CULTURE STOOL POSITIVE [None]
  - DIARRHOEA [None]
  - NAUSEA [None]
  - VOMITING [None]
